FAERS Safety Report 15695358 (Version 1)
Quarter: 2018Q4

REPORT INFORMATION
  Report Type: Spontaneous
  Country: JP (occurrence: JP)
  Receive Date: 20181206
  Receipt Date: 20181206
  Transmission Date: 20190205
  Serious: Yes (Other)
  Sender: FDA-Public Use
  Company Number: JP-BAYER-2018-224412

PATIENT
  Sex: Female

DRUGS (1)
  1. IOPROMIDE. [Suspect]
     Active Substance: IOPROMIDE
     Indication: COMPUTERISED TOMOGRAM
     Dosage: 80 ML
     Route: 042
     Dates: start: 20181127, end: 20181127

REACTIONS (5)
  - Pallor [None]
  - Blood pressure decreased [Recovered/Resolved]
  - Pulse abnormal [None]
  - Vomiting [None]
  - Altered state of consciousness [None]

NARRATIVE: CASE EVENT DATE: 20181127
